FAERS Safety Report 4704276-2 (Version None)
Quarter: 2005Q2

REPORT INFORMATION
  Report Type: 
  Country: None (occurrence: None)
  Receive Date: 20050628
  Receipt Date: 20050616
  Transmission Date: 20051028
  Serious: Yes (Hospitalization, Other)
  Sender: FDA-Public Use
  Company Number: NO-2005-009926

PATIENT
  Sex: Female

DRUGS (2)
  1. LEVONORGESTREL [Suspect]
     Indication: CONTRACEPTION
     Dosage: 20 UG/DAY INTRA-UTERINE
     Route: 015
     Dates: start: 20000401, end: 20050504
  2. LEVONORGESTREL [Suspect]
     Indication: CONTRACEPTION
     Dosage: 20 UG/DAY, INTRA-UTERINE
     Route: 015
     Dates: start: 20050504, end: 20050515

REACTIONS (3)
  - CERVIX CARCINOMA STAGE III [None]
  - INTRA-UTERINE CONTRACEPTIVE DEVICE EXPELLED [None]
  - POST PROCEDURAL HAEMORRHAGE [None]
